FAERS Safety Report 8876593 (Version 1)
Quarter: 2012Q4

REPORT INFORMATION
  Report Type: 
  Country: US (occurrence: US)
  Receive Date: 20121023
  Receipt Date: 20121023
  Transmission Date: 20130627
  Serious: No
  Sender: FDA-Public Use
  Company Number: US-ASTELLAS-2012US007868

PATIENT
  Sex: Female

DRUGS (2)
  1. PROGRAF [Suspect]
     Indication: RENAL TRANSPLANT
     Dosage: 4 mg, Q12 hours
     Route: 048
  2. MYFORTIC [Concomitant]
     Indication: RENAL TRANSPLANT
     Dosage: 180 mg q 12 hrs, UID/QD
     Route: 048

REACTIONS (2)
  - Acne [Unknown]
  - Alopecia [Unknown]
